FAERS Safety Report 9912217 (Version 1)
Quarter: 2014Q1

REPORT INFORMATION
  Report Type: Spontaneous
  Country: US (occurrence: US)
  Receive Date: 20140220
  Receipt Date: 20140220
  Transmission Date: 20141002
  Serious: No
  Sender: FDA-Public Use
  Company Number: US-SA-2014SA009509

PATIENT
  Age: 34 Year
  Sex: Female

DRUGS (1)
  1. AUVI-Q [Suspect]
     Route: 065

REACTIONS (2)
  - Injection site paraesthesia [Unknown]
  - Injury associated with device [Unknown]
